FAERS Safety Report 20132760 (Version 1)
Quarter: 2021Q4

REPORT INFORMATION
  Report Type: Spontaneous
  Country: US (occurrence: US)
  Receive Date: 20211130
  Receipt Date: 20211130
  Transmission Date: 20220303
  Serious: No
  Sender: FDA-Public Use
  Company Number: US-Blueprint Medicines Corporation-SP-US-2021-002276

PATIENT
  Sex: Female

DRUGS (1)
  1. AYVAKIT [Suspect]
     Active Substance: AVAPRITINIB
     Indication: Mastocytic leukaemia
     Route: 048
     Dates: start: 20210629

REACTIONS (11)
  - Tinnitus [Unknown]
  - Ear discomfort [Unknown]
  - Sinusitis [Unknown]
  - Chills [Unknown]
  - Diplopia [Unknown]
  - Muscular weakness [Unknown]
  - Fatigue [Unknown]
  - Swelling face [Unknown]
  - Back pain [Unknown]
  - Intervertebral disc protrusion [Unknown]
  - Product dose omission in error [Unknown]
